FAERS Safety Report 7877588-1 (Version None)
Quarter: 2011Q4

REPORT INFORMATION
  Report Type: 
  Country: None (occurrence: None)
  Receive Date: 20111031
  Receipt Date: 20111020
  Transmission Date: 20120403
  Serious: Yes (Hospitalization, Other)
  Sender: FDA-Public Use
  Company Number: US-ASTRAZENECA-2011SE54227

PATIENT
  Age: 62 Year
  Sex: Female
  Weight: 64.4 kg

DRUGS (5)
  1. DOXEPIN [Concomitant]
     Indication: SLEEP DISORDER
  2. NOVOLOG [Concomitant]
     Indication: DIABETES MELLITUS
  3. NEXIUM [Suspect]
     Indication: DYSPEPSIA
     Route: 048
  4. NORCO [Concomitant]
     Indication: PAIN
  5. IBUPROFEN [Concomitant]
     Indication: PAIN

REACTIONS (4)
  - DRUG INEFFECTIVE [None]
  - WRIST FRACTURE [None]
  - FALL [None]
  - ANKLE FRACTURE [None]
